FAERS Safety Report 15550756 (Version 2)
Quarter: 2018Q4

REPORT INFORMATION
  Report Type: Spontaneous
  Country: RU (occurrence: RU)
  Receive Date: 20181025
  Receipt Date: 20181025
  Transmission Date: 20190205
  Serious: Yes (Death, Other)
  Sender: FDA-Public Use
  Company Number: RU-HORIZON-BUP-0067-2018

PATIENT
  Age: 3 Year
  Sex: Male

DRUGS (2)
  1. NA-BENZOAT [Concomitant]
     Indication: ORNITHINE TRANSCARBAMOYLASE DEFICIENCY
  2. AMMONAPS [Suspect]
     Active Substance: SODIUM PHENYLBUTYRATE
     Indication: ORNITHINE TRANSCARBAMOYLASE DEFICIENCY
     Dosage: 600 MG/KG
     Dates: start: 201703, end: 201810

REACTIONS (2)
  - Coma [Not Recovered/Not Resolved]
  - Hyperammonaemic crisis [Fatal]

NARRATIVE: CASE EVENT DATE: 201810
